FAERS Safety Report 7302235-7 (Version None)
Quarter: 2011Q1

REPORT INFORMATION
  Report Type: 
  Country: None (occurrence: None)
  Receive Date: 20110218
  Receipt Date: 20110215
  Transmission Date: 20110831
  Serious: Yes (Death, Hospitalization, Other)
  Sender: FDA-Public Use
  Company Number: PHHY2010BR54073

PATIENT
  Sex: Male

DRUGS (7)
  1. PURAN T4 [Concomitant]
     Indication: HYPOTHYROIDISM
     Dosage: ONE TABLET PER DAY
     Route: 048
     Dates: start: 20090101
  2. GERIATON [Concomitant]
     Indication: VITAMIN SUPPLEMENTATION
     Dosage: ONE TABLET PER DAY
     Route: 048
  3. METFORMIN [Concomitant]
     Dosage: 120MG/500MG, ONE TABLET BEFORE LUNCH
     Route: 048
     Dates: start: 20050101
  4. PLAGRIL [Concomitant]
     Dosage: ONE TABLET PER DAY
     Route: 048
  5. NATEGLINIDE [Concomitant]
  6. ASPIRIN [Concomitant]
     Indication: CEREBROVASCULAR ACCIDENT
     Dosage: ONE TABLET PER DAY
     Route: 048
     Dates: start: 20090101
  7. EXELON [Suspect]
     Indication: ARTERIOSCLEROSIS
     Dosage: 1 DF, BID
     Route: 062
     Dates: start: 20100501

REACTIONS (4)
  - PANCREATIC NEOPLASM [None]
  - CONCOMITANT DISEASE AGGRAVATED [None]
  - INCORRECT DOSE ADMINISTERED [None]
  - BLOOD GLUCOSE FLUCTUATION [None]
